FAERS Safety Report 11146428 (Version 3)
Quarter: 2015Q3

REPORT INFORMATION
  Report Type: Spontaneous
  Country: BR (occurrence: BR)
  Receive Date: 20150528
  Receipt Date: 20150825
  Transmission Date: 20151125
  Serious: Yes (Hospitalization, Disabling, Other)
  Sender: FDA-Public Use
  Company Number: BR-ASTRAZENECA-2015SE50384

PATIENT
  Age: 61 Year
  Sex: Female
  Weight: 66 kg

DRUGS (9)
  1. PREDNISOLONE+FAMOTIDINE+ HYDROCHLOROTHIAZIDE+NIMESULIDE (COMPOUNDED) [Suspect]
     Active Substance: FAMOTIDINE\HYDROCHLOROTHIAZIDE\PREDNISOLONE\NIMESULIDE
     Indication: SYSTEMIC LUPUS ERYTHEMATOSUS
     Dosage: DAILY
     Route: 048
  2. SYMBICORT [Suspect]
     Active Substance: BUDESONIDE\FORMOTEROL FUMARATE DIHYDRATE
     Indication: ASTHMA
     Dosage: ALENIA, 12/400 MCG, TWO TIMES A DAY
     Route: 055
     Dates: start: 2009, end: 20150518
  3. VIMOVO [Suspect]
     Active Substance: ESOMEPRAZOLE MAGNESIUM\NAPROXEN
     Indication: INTERVERTEBRAL DISC PROTRUSION
     Dosage: 500 + 20 MG, AS REQUIRED
     Route: 048
  4. ASA [Concomitant]
     Active Substance: ASPIRIN
     Indication: PERIPHERAL ARTERIAL OCCLUSIVE DISEASE
     Route: 048
  5. TORSILAX [Concomitant]
     Active Substance: ACETAMINOPHEN\CAFFEINE\CARISOPRODOL\DICLOFENAC
     Indication: INTERVERTEBRAL DISC PROTRUSION
  6. SYMBICORT [Suspect]
     Active Substance: BUDESONIDE\FORMOTEROL FUMARATE DIHYDRATE
     Indication: LUNG DISORDER
     Dosage: ALENIA, 12/400 MCG, TWO TIMES A DAY
     Route: 055
     Dates: start: 2009, end: 20150518
  7. SYMBICORT [Suspect]
     Active Substance: BUDESONIDE\FORMOTEROL FUMARATE DIHYDRATE
     Indication: ASTHMA
     Dosage: 320/9 MCG, TWO TIMES A DAY
     Route: 055
     Dates: start: 20150519
  8. DAFLON [Concomitant]
     Active Substance: DIOSMIN\HESPERIDIN
     Indication: PERIPHERAL ARTERIAL OCCLUSIVE DISEASE
     Route: 048
  9. SYMBICORT [Suspect]
     Active Substance: BUDESONIDE\FORMOTEROL FUMARATE DIHYDRATE
     Indication: LUNG DISORDER
     Dosage: 320/9 MCG, TWO TIMES A DAY
     Route: 055
     Dates: start: 20150519

REACTIONS (11)
  - Asthenia [Recovered/Resolved]
  - Meniscus injury [Recovered/Resolved]
  - Fall [Recovered/Resolved]
  - Patella fracture [Recovered/Resolved]
  - Product use issue [Not Recovered/Not Resolved]
  - Peripheral arterial occlusive disease [Unknown]
  - Somnolence [Recovered/Resolved]
  - Off label use [Not Recovered/Not Resolved]
  - Asthmatic crisis [Recovered/Resolved]
  - Palpitations [Recovered/Resolved]
  - Intentional product misuse [Recovered/Resolved]

NARRATIVE: CASE EVENT DATE: 2011
